FAERS Safety Report 8560722-8 (Version None)
Quarter: 2012Q3

REPORT INFORMATION
  Report Type: 
  Country: None (occurrence: None)
  Receive Date: 20120802
  Receipt Date: 20120730
  Transmission Date: 20120928
  Serious: Yes (Hospitalization)
  Sender: FDA-Public Use
  Company Number: PHEH2012US013495

PATIENT
  Sex: Female

DRUGS (5)
  1. GILENYA [Suspect]
     Indication: MULTIPLE SCLEROSIS
     Dosage: 1 DF, QD
     Route: 048
     Dates: start: 20120702, end: 20120703
  2. LYRICA [Concomitant]
     Dosage: 50 MG, TID
     Route: 048
  3. OXYCONTIN [Concomitant]
     Dosage: 20 G, QD
     Route: 048
  4. NUVIGIL [Concomitant]
     Dosage: 150 MG, QD
     Route: 048
  5. TIZANIDINE HYDROCHLORIDE [Concomitant]
     Dosage: 4 G, QHS
     Route: 048

REACTIONS (3)
  - HEART RATE DECREASED [None]
  - ATRIOVENTRICULAR BLOCK SECOND DEGREE [None]
  - ARRHYTHMIA [None]
